FAERS Safety Report 9466103 (Version 2)
Quarter: 2013Q3

REPORT INFORMATION
  Report Type: Spontaneous
  Country: JP (occurrence: JP)
  Receive Date: 20130820
  Receipt Date: 20130905
  Transmission Date: 20140515
  Serious: Yes (Hospitalization, Other)
  Sender: FDA-Public Use
  Company Number: JP-ACTAVIS-2013-14199

PATIENT
  Age: 69 Year
  Sex: Female

DRUGS (3)
  1. GEMCITABINE (UNKNOWN) [Suspect]
     Indication: PANCREATIC CARCINOMA
     Dosage: 800 MG, DAY 1,8
     Route: 065
  2. GEMCITABINE (UNKNOWN) [Suspect]
     Dosage: 1000 MG/M2, DAYS 1, 8, 15 /28 DAYS
     Route: 065
  3. GEMCITABINE (UNKNOWN) [Suspect]
     Dosage: 1000 MG/M2, DAYS 1, 8 /21 DAYS
     Route: 065

REACTIONS (3)
  - Interstitial lung disease [Recovered/Resolved]
  - Pulmonary alveolar haemorrhage [Recovered/Resolved]
  - Bone marrow failure [Unknown]
